FAERS Safety Report 8048907-0 (Version None)
Quarter: 2012Q1

REPORT INFORMATION
  Report Type: 
  Country: None (occurrence: None)
  Receive Date: 20120117
  Receipt Date: 20120111
  Transmission Date: 20120608
  Serious: Yes (Other)
  Sender: FDA-Public Use
  Company Number: SG-BAYER-2012-003506

PATIENT
  Age: 20 Year
  Sex: Male

DRUGS (4)
  1. AMPICILLIN [Suspect]
  2. KETOPROFEN [Suspect]
  3. PENICILLIN V [Suspect]
  4. ACETYLSALICYLIC ACID SRT [Suspect]

REACTIONS (1)
  - ANGIOEDEMA [None]
